FAERS Safety Report 22186040 (Version 1)
Quarter: 2023Q2

REPORT INFORMATION
  Report Type: Spontaneous
  Country: CA (occurrence: CA)
  Receive Date: 20230407
  Receipt Date: 20230407
  Transmission Date: 20230721
  Serious: Yes (Hospitalization)
  Sender: FDA-Public Use
  Company Number: CA-ORGANON-O2304CAN000558

PATIENT
  Age: 82 Year
  Sex: Female
  Weight: 56 kg

DRUGS (14)
  1. SINEMET [Suspect]
     Active Substance: CARBIDOPA\LEVODOPA
     Indication: Parkinson^s disease
     Dosage: 1.0 DOSAGE FORM, 4 EVERY 1 DAYS
     Route: 048
  2. SINEMET [Concomitant]
     Active Substance: CARBIDOPA\LEVODOPA
     Dosage: UNK
     Route: 065
  3. ACETAMINOPHEN [Concomitant]
     Active Substance: ACETAMINOPHEN
     Dosage: UNK,(DOSAGE FORM:NOT SPECIFIED)
     Route: 065
  4. AMANTADINE [Concomitant]
     Active Substance: AMANTADINE
     Dosage: UNK,(DOSAGE FORM:NOT SPECIFIED)
     Route: 065
  5. CALCIUM [Concomitant]
     Active Substance: CALCIUM
     Dosage: UNK,(DOSAGE FORM:NOT SPECIFIED)
     Route: 065
  6. CANDESARTAN [Concomitant]
     Active Substance: CANDESARTAN
     Dosage: UNK
     Route: 065
  7. POLYETHYLENE GLYCOL 3350 [Concomitant]
     Active Substance: POLYETHYLENE GLYCOL 3350
     Dosage: UNK,(DOSAGE FORM:POWDER FOR SOLUTION ORAL)
     Route: 065
  8. MYRBETRIQ [Concomitant]
     Active Substance: MIRABEGRON
     Dosage: UNK
     Route: 065
  9. PREGABALIN [Concomitant]
     Active Substance: PREGABALIN
     Dosage: UNK
     Route: 065
  10. RASAGILINE [Concomitant]
     Active Substance: RASAGILINE
     Dosage: UNK,(DOSAGE FORM:NOT SPECIFIED)
     Route: 065
  11. RISEDRONATE SODIUM [Concomitant]
     Active Substance: RISEDRONATE SODIUM
     Dosage: UNK,(DOSAGE FORM:NOT SPECIFIED)
     Route: 065
  12. SYNTHROID [Concomitant]
     Active Substance: LEVOTHYROXINE SODIUM
     Dosage: UNK,(DOSAGE FORM:NOT SPECIFIED)
     Route: 065
  13. VITAMIN B12 [Concomitant]
     Active Substance: CYANOCOBALAMIN
     Dosage: UNK
     Route: 065
  14. CHOLECALCIFEROL [Concomitant]
     Active Substance: CHOLECALCIFEROL
     Dosage: UNK,(DOSAGE FORM:NOT SPECIFIED)
     Route: 065

REACTIONS (9)
  - Confusional state [Recovered/Resolved]
  - Dyskinesia [Recovered/Resolved]
  - Dystonia [Recovered/Resolved]
  - Hyponatraemia [Recovered/Resolved]
  - Inappropriate antidiuretic hormone secretion [Recovered/Resolved]
  - Intentional product misuse [Recovered/Resolved]
  - Mobility decreased [Recovered/Resolved]
  - Petit mal epilepsy [Recovered/Resolved]
  - Somnolence [Recovered/Resolved]
